FAERS Safety Report 4381513-8 (Version None)
Quarter: 2004Q2

REPORT INFORMATION
  Report Type: 
  Country: None (occurrence: None)
  Receive Date: 20040621
  Receipt Date: 20040618
  Transmission Date: 20050107
  Serious: Yes (Other)
  Sender: FDA-Public Use
  Company Number: US-GLAXOSMITHKLINE-A0515224A

PATIENT

DRUGS (3)
  1. TRIZIVIR [Suspect]
     Indication: HIV INFECTION
     Route: 048
  2. SUSTIVA [Concomitant]
  3. LIPITOR [Concomitant]

REACTIONS (1)
  - HEPATIC ENZYME INCREASED [None]
